FAERS Safety Report 10402105 (Version 1)
Quarter: 2014Q3

REPORT INFORMATION
  Report Type: Spontaneous
  Country: US (occurrence: None)
  Receive Date: 20140820
  Receipt Date: 20140820
  Transmission Date: 20150326
  Serious: No
  Sender: FDA-Public Use
  Company Number: None

PATIENT
  Sex: Female

DRUGS (1)
  1. GABAPENTIN. [Suspect]
     Active Substance: GABAPENTIN
     Indication: RADICULOPATHY
     Dosage: GABAPENTIN 600 MG  1 1/2  TID

REACTIONS (6)
  - Confusional state [None]
  - Weight decreased [None]
  - Product substitution issue [None]
  - Swollen tongue [None]
  - Dysgeusia [None]
  - Altered visual depth perception [None]

NARRATIVE: CASE EVENT DATE: 2006
